FAERS Safety Report 16973501 (Version 2)
Quarter: 2019Q4

REPORT INFORMATION
  Report Type: Report from Study
  Country: DE (occurrence: DE)
  Receive Date: 20191030
  Receipt Date: 20191106
  Transmission Date: 20200122
  Serious: Yes (Hospitalization, Other)
  Sender: FDA-Public Use
  Company Number: DE-JNJFOC-20191035488

PATIENT
  Age: 75 Year
  Sex: Male

DRUGS (12)
  1. JARDIANCE [Concomitant]
     Active Substance: EMPAGLIFLOZIN
     Dosage: 10 MG, QD
  2. PENICILLIN G [Concomitant]
     Active Substance: PENICILLIN G
     Indication: ERYSIPELAS
     Dosage: UNK
     Dates: start: 20190915
  3. RISPERIDONE. [Concomitant]
     Active Substance: RISPERIDONE
     Indication: DELIRIUM
  4. MELPERON [Concomitant]
     Active Substance: MELPERONE
     Indication: DELIRIUM
  5. INSPRA [Concomitant]
     Active Substance: EPLERENONE
     Dosage: 25 MG, QD
  6. BELOC ZOK [Concomitant]
     Active Substance: METOPROLOL SUCCINATE
     Dosage: 23.75 MG, QD (HALF OF A 47.5 MG TABLET)
  7. ATORVASTATIN [Concomitant]
     Active Substance: ATORVASTATIN
     Dosage: 20 MG, QD
  8. MELATONIN [Concomitant]
     Active Substance: MELATONIN
     Indication: DELIRIUM
  9. RIVAROXABAN [Suspect]
     Active Substance: RIVAROXABAN
     Indication: ATRIAL FIBRILLATION
     Dosage: 1 DF, OM
     Route: 048
  10. CIPRAMIL (CITALOPRAM HYDROBROMIDE) [Suspect]
     Active Substance: CITALOPRAM HYDROBROMIDE
     Indication: PRODUCT USED FOR UNKNOWN INDICATION
     Dosage: 20 MG, QD
     Route: 042
  11. CANDESARTAN. [Concomitant]
     Active Substance: CANDESARTAN
     Dosage: 8 MG, QD
  12. JANUVIA [Concomitant]
     Active Substance: SITAGLIPTIN PHOSPHATE
     Dosage: 100 MG, QD

REACTIONS (3)
  - Cerebral infarction [Recovering/Resolving]
  - Cerebral ventricle collapse [Recovering/Resolving]
  - Cerebral haemorrhage [Recovering/Resolving]

NARRATIVE: CASE EVENT DATE: 20190918
